FAERS Safety Report 10443742 (Version 1)
Quarter: 2014Q3

REPORT INFORMATION
  Report Type: Spontaneous
  Country: US (occurrence: None)
  Receive Date: 20140909
  Receipt Date: 20140909
  Transmission Date: 20150326
  Serious: Yes (Hospitalization)
  Sender: FDA-Public Use
  Company Number: None

PATIENT
  Age: 80 Year
  Sex: Male
  Weight: 80 kg

DRUGS (11)
  1. ELIQUIS [Suspect]
     Active Substance: APIXABAN
     Indication: ATRIAL FIBRILLATION
     Route: 048
     Dates: start: 20140205, end: 20140519
  2. ELIQUIS [Concomitant]
     Active Substance: APIXABAN
  3. ECOTRIN [Concomitant]
     Active Substance: ASPIRIN
  4. TRAMADOL [Concomitant]
     Active Substance: TRAMADOL
  5. MULTIVITAMIN [Concomitant]
     Active Substance: VITAMINS
  6. GLIPIZIDE. [Concomitant]
     Active Substance: GLIPIZIDE
  7. CARVEDILOL. [Concomitant]
     Active Substance: CARVEDILOL
  8. NAPROXEN. [Concomitant]
     Active Substance: NAPROXEN
  9. SIMVASTATIN. [Concomitant]
     Active Substance: SIMVASTATIN
  10. ARICEPT [Concomitant]
     Active Substance: DONEPEZIL HYDROCHLORIDE
  11. PROTONIX [Concomitant]
     Active Substance: PANTOPRAZOLE SODIUM

REACTIONS (1)
  - Muscle haemorrhage [None]

NARRATIVE: CASE EVENT DATE: 20140520
